FAERS Safety Report 9233043 (Version 1)
Quarter: 2013Q1

REPORT INFORMATION
  Report Type: Spontaneous
  Country: US (occurrence: None)
  Receive Date: 20121031
  Receipt Date: 20121031
  Transmission Date: 20140127
  Serious: No
  Sender: FDA-Public Use
  Company Number: PHEH2012US012213

PATIENT
  Age: 44 Year
  Sex: Female

DRUGS (6)
  1. GILENYA [Suspect]
     Indication: RELAPSING-REMITTING MULTIPLE SCLEROSIS
     Route: 048
     Dates: start: 20120615
  2. BUPROPION (BUPROPION) [Concomitant]
  3. FAMPRIDINE (FAMPRIDINE) [Concomitant]
  4. VITAMINE D (ERGCOLCIFEROL) [Concomitant]
  5. IRON (IRON) [Concomitant]
  6. VITAMIN C [Concomitant]

REACTIONS (2)
  - Gait disturbance [None]
  - Drug ineffective [None]
